FAERS Safety Report 8177607 (Version 3)
Quarter: 2012Q4

REPORT INFORMATION
  Report Type: 
  Country: FR (occurrence: FR)
  Receive Date: 20111012
  Receipt Date: 20121127
  Transmission Date: 20130627
  Serious: Yes (Other)
  Sender: FDA-Public Use
  Company Number: PHHY2011FR89097

PATIENT
  Age: 71 Year
  Sex: Female
  Weight: 38 kg

DRUGS (3)
  1. ACLASTA [Suspect]
     Indication: OSTEOPOROSIS
     Dosage: 5 mg, yearly
     Route: 042
  2. VITAMIN B12 [Concomitant]
  3. BISPHOSPHONATES [Concomitant]

REACTIONS (5)
  - Osteolysis [Unknown]
  - Infection [Recovering/Resolving]
  - Impaired healing [Recovering/Resolving]
  - Bone disorder [Recovering/Resolving]
  - Gingival pain [Recovered/Resolved]
